FAERS Safety Report 23782665 (Version 1)
Quarter: 2024Q2

REPORT INFORMATION
  Report Type: Spontaneous
  Country: AU (occurrence: AU)
  Receive Date: 20240425
  Receipt Date: 20240425
  Transmission Date: 20240716
  Serious: Yes (Death, Hospitalization)
  Sender: FDA-Public Use
  Company Number: AU-MYLANLABS-2024M1036367

PATIENT
  Age: 57 Year
  Sex: Male

DRUGS (28)
  1. TACROLIMUS [Suspect]
     Active Substance: TACROLIMUS
     Indication: Immunosuppressant drug therapy
     Dosage: UNK
     Route: 065
  2. TACROLIMUS [Suspect]
     Active Substance: TACROLIMUS
     Dosage: UNK; DOSE DECREASED
     Route: 065
  3. VORICONAZOLE [Suspect]
     Active Substance: VORICONAZOLE
     Indication: Mycotic endophthalmitis
     Dosage: 200 MILLIGRAM, BID
     Route: 048
  4. VORICONAZOLE [Suspect]
     Active Substance: VORICONAZOLE
     Indication: Scedosporium infection
     Dosage: 250 MILLIGRAM, BID
     Route: 048
  5. VORICONAZOLE [Suspect]
     Active Substance: VORICONAZOLE
     Dosage: UNK, RESTARTED
     Route: 048
  6. VORICONAZOLE [Suspect]
     Active Substance: VORICONAZOLE
     Indication: Mycotic endophthalmitis
     Dosage: UNK
  7. VORICONAZOLE [Suspect]
     Active Substance: VORICONAZOLE
     Indication: Scedosporium infection
     Dosage: UNK; 100 ?G/0.1ML
  8. VORICONAZOLE [Suspect]
     Active Substance: VORICONAZOLE
     Dosage: UNK; TWO FURTHER DOSES OF INTRAVITREAL VORICONAZOLE
  9. VORICONAZOLE [Suspect]
     Active Substance: VORICONAZOLE
     Dosage: UNK; 100??G/0.1ML
  10. CASPOFUNGIN [Suspect]
     Active Substance: CASPOFUNGIN
     Indication: Mycotic endophthalmitis
     Dosage: UNK; 100??G/0.1ML
  11. CASPOFUNGIN [Suspect]
     Active Substance: CASPOFUNGIN
     Indication: Scedosporium infection
     Dosage: UNK; 100??G/0.1ML
  12. TERBINAFINE [Suspect]
     Active Substance: TERBINAFINE
     Indication: Mycotic endophthalmitis
     Dosage: 250 MILLIGRAM, BID
     Route: 065
  13. TERBINAFINE [Suspect]
     Active Substance: TERBINAFINE
     Indication: Scedosporium infection
     Dosage: UNK, RESTARTED
     Route: 065
  14. TERBINAFINE [Suspect]
     Active Substance: TERBINAFINE
     Dosage: UNK
     Route: 065
  15. AMPHOTERICIN B [Suspect]
     Active Substance: AMPHOTERICIN B
     Indication: Mycotic endophthalmitis
     Dosage: UNK; 10??G/0.1ML
  16. AMPHOTERICIN B [Suspect]
     Active Substance: AMPHOTERICIN B
     Indication: Scedosporium infection
  17. OLOROFIM [Suspect]
     Active Substance: OLOROFIM
     Indication: Mycotic endophthalmitis
     Dosage: 150 MILLIGRAM, QD, LOADING DOSE
     Route: 065
  18. OLOROFIM [Suspect]
     Active Substance: OLOROFIM
     Indication: Scedosporium infection
     Dosage: 90 MILLIGRAM, BID
     Route: 065
  19. OLOROFIM [Suspect]
     Active Substance: OLOROFIM
     Dosage: UNK
     Route: 065
  20. VALGANCICLOVIR [Concomitant]
     Active Substance: VALGANCICLOVIR
     Indication: Product used for unknown indication
     Dosage: UNK
     Route: 065
  21. VALGANCICLOVIR [Concomitant]
     Active Substance: VALGANCICLOVIR
     Dosage: UNK, DOSE OF VALGANCICLOVIR WAS REDUCED
     Route: 065
  22. SULFAMETHOXAZOLE\TRIMETHOPRIM [Concomitant]
     Active Substance: SULFAMETHOXAZOLE\TRIMETHOPRIM
     Indication: Product used for unknown indication
     Dosage: UNK
     Route: 065
  23. VANCOMYCIN [Concomitant]
     Active Substance: VANCOMYCIN
     Indication: Product used for unknown indication
     Dosage: UNK
  24. CEFTAZIDIME [Concomitant]
     Active Substance: CEFTAZIDIME
     Indication: Product used for unknown indication
     Dosage: UNK
  25. FOSCARNET [Concomitant]
     Active Substance: FOSCARNET
     Indication: Product used for unknown indication
     Dosage: UNK
  26. DIMETHICONE [Concomitant]
     Active Substance: DIMETHICONE
     Indication: Product used for unknown indication
     Dosage: UNK
     Route: 065
  27. MICAFUNGIN [Concomitant]
     Active Substance: MICAFUNGIN SODIUM
     Indication: Endophthalmitis
     Dosage: 300 MILLIGRAM
     Route: 065
  28. MICAFUNGIN [Concomitant]
     Active Substance: MICAFUNGIN SODIUM
     Indication: Scedosporium infection
     Dosage: 150 MILLIGRAM, QD
     Route: 065

REACTIONS (4)
  - Mycotic endophthalmitis [Fatal]
  - Scedosporium infection [Fatal]
  - Drug ineffective [Fatal]
  - Off label use [Unknown]
